FAERS Safety Report 17860967 (Version 2)
Quarter: 2024Q1

REPORT INFORMATION
  Report Type: Spontaneous
  Country: US (occurrence: US)
  Receive Date: 20200604
  Receipt Date: 20240212
  Transmission Date: 20240410
  Serious: No
  Sender: FDA-Public Use
  Company Number: US-INCYTE CORPORATION-2020IN004975

PATIENT

DRUGS (8)
  1. JAKAFI [Suspect]
     Active Substance: RUXOLITINIB
     Indication: Myelofibrosis
     Dosage: 20 MILLIGRAM, BID
     Route: 048
     Dates: start: 20191110
  2. JAKAFI [Suspect]
     Active Substance: RUXOLITINIB
     Dosage: 20 MILLIGRAM, BID
     Route: 048
     Dates: start: 20191110
  3. JAKAFI [Suspect]
     Active Substance: RUXOLITINIB
     Dosage: 20 MILLIGRAM, BID
     Route: 048
     Dates: start: 20191110
  4. JAKAFI [Suspect]
     Active Substance: RUXOLITINIB
     Dosage: 20 MILLIGRAM, BID
     Route: 048
  5. NADOLOL [Concomitant]
     Active Substance: NADOLOL
     Indication: Product used for unknown indication
     Dosage: 80 MILLIGRAM
     Route: 065
  6. OMEPRAZOLE [Concomitant]
     Active Substance: OMEPRAZOLE
     Indication: Product used for unknown indication
     Dosage: 40 MILLIGRAM
     Route: 065
  7. PROCRIT [Concomitant]
     Active Substance: ERYTHROPOIETIN
     Indication: Product used for unknown indication
     Dosage: 40000UNIT/ML
     Route: 065
  8. XANAX [Concomitant]
     Active Substance: ALPRAZOLAM
     Indication: Product used for unknown indication
     Dosage: 2 MILLIGRAM
     Route: 065

REACTIONS (10)
  - Product dose omission in error [Unknown]
  - Stress [Unknown]
  - Anxiety disorder [Unknown]
  - Panic attack [Unknown]
  - Pain [Unknown]
  - Fatigue [Unknown]
  - Decreased appetite [Unknown]
  - Product availability issue [Unknown]
  - Psychiatric symptom [Unknown]
  - Nausea [Not Recovered/Not Resolved]
